FAERS Safety Report 15833831 (Version 1)
Quarter: 2019Q1

REPORT INFORMATION
  Report Type: Spontaneous
  Country: US (occurrence: US)
  Receive Date: 20190116
  Receipt Date: 20190116
  Transmission Date: 20190417
  Serious: No
  Sender: FDA-Public Use
  Company Number: US-PERRIGO-18US009464

PATIENT
  Age: 61 Year
  Sex: Female
  Weight: 57.14 kg

DRUGS (3)
  1. LIALDA [Concomitant]
     Active Substance: MESALAMINE
     Indication: COLITIS ULCERATIVE
     Dosage: UNK
     Route: 065
     Dates: start: 2015
  2. COLOCORT [Suspect]
     Active Substance: HYDROCORTISONE
     Indication: COLITIS ULCERATIVE
     Dosage: 100 MG, QHS
     Route: 054
     Dates: start: 201807, end: 20180904
  3. COLOCORT [Suspect]
     Active Substance: HYDROCORTISONE
     Dosage: 100 MG, QHS
     Route: 054
     Dates: start: 201810, end: 20181010

REACTIONS (3)
  - Rectal haemorrhage [Not Recovered/Not Resolved]
  - Drug effect decreased [Unknown]
  - Pain in extremity [Not Recovered/Not Resolved]

NARRATIVE: CASE EVENT DATE: 20180904
